FAERS Safety Report 5782087-7 (Version None)
Quarter: 2008Q2

REPORT INFORMATION
  Report Type: 
  Country: None (occurrence: None)
  Receive Date: 20080623
  Receipt Date: 20080609
  Transmission Date: 20081010
  Serious: Yes (Death)
  Sender: FDA-Public Use
  Company Number: RU-ROCHE-553457

PATIENT
  Sex: Male
  Weight: 72.5 kg

DRUGS (7)
  1. CAPECITABINE [Suspect]
     Indication: GASTRIC CANCER
     Dosage: GIVEN D1-14.
     Route: 048
     Dates: start: 20080220, end: 20080312
  2. TRASTUZUMAB [Suspect]
     Indication: GASTRIC CANCER
     Dosage: FORM REPORTED AS INFUSION.
     Route: 042
     Dates: start: 20080220, end: 20080312
  3. CISPLATIN [Suspect]
     Indication: GASTRIC CANCER
     Dosage: FORM REPORTED AS INFUSION.
     Route: 042
     Dates: start: 20080220, end: 20080312
  4. METAPROTERENOL [Concomitant]
     Dosage: REPORTED AS METAPRONALOL.
     Dates: start: 20071001, end: 20080312
  5. ASPIRIN [Concomitant]
     Dates: start: 20061201, end: 20080312
  6. MAGNESIUM HYDROXIDE TAB [Concomitant]
     Dosage: TOTAL DAILY DOSE 15.2.
     Dates: start: 20061201, end: 20080312
  7. TRIMETAZIDINE [Concomitant]
     Dates: start: 20080308, end: 20080312

REACTIONS (1)
  - ACUTE MYOCARDIAL INFARCTION [None]
